FAERS Safety Report 22225855 (Version 1)
Quarter: 2023Q2

REPORT INFORMATION
  Report Type: Spontaneous
  Country: TW (occurrence: TW)
  Receive Date: 20230419
  Receipt Date: 20230419
  Transmission Date: 20230721
  Serious: Yes (Hospitalization)
  Sender: FDA-Public Use
  Company Number: TW-MTPC-MTPC2023-0009857AA

PATIENT
  Age: 20 Year
  Sex: Male

DRUGS (1)
  1. REMICADE [Suspect]
     Active Substance: INFLIXIMAB
     Indication: Colitis ulcerative
     Dosage: 300MG/Q8W (LAST DOSE ON 2023/03/11)
     Route: 042
     Dates: start: 20221013

REACTIONS (2)
  - Gingival bleeding [Unknown]
  - Petechiae [Unknown]

NARRATIVE: CASE EVENT DATE: 20230409
